FAERS Safety Report 7874509-2 (Version None)
Quarter: 2011Q4

REPORT INFORMATION
  Report Type: 
  Country: None (occurrence: None)
  Receive Date: 20111030
  Receipt Date: 20110520
  Transmission Date: 20120403
  Serious: No
  Sender: FDA-Public Use
  Company Number: US-AMGEN-USASP2011026597

PATIENT
  Age: 55 Year
  Sex: Male
  Weight: 102 kg

DRUGS (1)
  1. ENBREL [Suspect]
     Indication: PSORIASIS
     Dosage: 50 MG, 2 TIMES/WK
     Route: 058
     Dates: start: 20110301

REACTIONS (6)
  - SINUSITIS [None]
  - TOOTH FRACTURE [None]
  - TOOTHACHE [None]
  - ERYTHEMA [None]
  - LOCAL SWELLING [None]
  - PAIN [None]
